FAERS Safety Report 14279320 (Version 2)
Quarter: 2018Q1

REPORT INFORMATION
  Report Type: Spontaneous
  Country: US (occurrence: US)
  Receive Date: 20171213
  Receipt Date: 20180115
  Transmission Date: 20180508
  Serious: Yes (Hospitalization)
  Sender: FDA-Public Use
  Company Number: US-BEH-2017085793

PATIENT
  Age: 17 Year
  Sex: Female
  Weight: 53.52 kg

DRUGS (14)
  1. AZATHIOPRINE. [Concomitant]
     Active Substance: AZATHIOPRINE
  2. NEXIUM [Concomitant]
     Active Substance: ESOMEPRAZOLE MAGNESIUM
  3. SULFAMETHOXAZOLE AND TRIMETHOPRIM [Concomitant]
     Active Substance: SULFAMETHOXAZOLE\TRIMETHOPRIM
  4. MELOXICAM. [Concomitant]
     Active Substance: MELOXICAM
  5. HIZENTRA [Suspect]
     Active Substance: HUMAN IMMUNOGLOBULIN G
     Dosage: UNK
     Route: 058
  6. HIZENTRA [Suspect]
     Active Substance: HUMAN IMMUNOGLOBULIN G
     Dosage: UNK
     Route: 058
  7. LIDOCAINE. [Concomitant]
     Active Substance: LIDOCAINE
  8. OFLOXACIN. [Concomitant]
     Active Substance: OFLOXACIN
  9. DIPHENHYDRAMINE. [Concomitant]
     Active Substance: DIPHENHYDRAMINE
  10. ACETAMINOPHEN. [Concomitant]
     Active Substance: ACETAMINOPHEN
  11. FLOVENT [Concomitant]
     Active Substance: FLUTICASONE PROPIONATE
  12. HIZENTRA [Suspect]
     Active Substance: HUMAN IMMUNOGLOBULIN G
     Indication: HYPOGAMMAGLOBULINAEMIA
     Dosage: 12 G, UNK
     Route: 058
     Dates: start: 20161227
  13. EPINEPHRINE. [Concomitant]
     Active Substance: EPINEPHRINE
  14. FLONASE [Concomitant]
     Active Substance: FLUTICASONE PROPIONATE

REACTIONS (1)
  - Glomerulonephritis rapidly progressive [Unknown]

NARRATIVE: CASE EVENT DATE: 20171116
